FAERS Safety Report 8514705-4 (Version None)
Quarter: 2012Q3

REPORT INFORMATION
  Report Type: 
  Country: None (occurrence: None)
  Receive Date: 20120711
  Receipt Date: 20120711
  Transmission Date: 20120928
  Serious: Yes (Hospitalization, Other)
  Sender: FDA-Public Use
  Company Number: None

PATIENT
  Age: 56 Year
  Sex: Male
  Weight: 81.6475 kg

DRUGS (2)
  1. XARELTO [Suspect]
     Indication: ATRIAL FIBRILLATION
     Dosage: 20MG ONCE DAILY PO
     Route: 048
     Dates: start: 20111208, end: 20120606
  2. XARELTO [Suspect]
     Indication: ANTICOAGULANT THERAPY
     Dosage: 20MG ONCE DAILY PO
     Route: 048
     Dates: start: 20111208, end: 20120606

REACTIONS (10)
  - PANIC ATTACK [None]
  - IMPAIRED DRIVING ABILITY [None]
  - PALPITATIONS [None]
  - HYPERHIDROSIS [None]
  - MALAISE [None]
  - CHEST PAIN [None]
  - FATIGUE [None]
  - FEELING ABNORMAL [None]
  - ANXIETY [None]
  - PARAESTHESIA [None]
